FAERS Safety Report 7467140 (Version 2)
Quarter: 2012Q4

REPORT INFORMATION
  Report Type: 
  Country: CA (occurrence: CA)
  Receive Date: 20100712
  Receipt Date: 20121009
  Transmission Date: 20130627
  Serious: Yes (Death, Hospitalization, Other)
  Sender: FDA-Public Use
  Company Number: PHMT2006CA01268

PATIENT
  Age: 48 None
  Sex: Male

DRUGS (1)
  1. SANDOSTATIN LAR [Suspect]
     Indication: CARCINOID TUMOUR
     Dosage: 60 mg, TIW
     Route: 030
     Dates: start: 20020501, end: 20090114

REACTIONS (8)
  - Death [Fatal]
  - Skin atrophy [Unknown]
  - Meningioma [Unknown]
  - Hemiparesis [Unknown]
  - Hypokinesia [Unknown]
  - Malignant neoplasm progression [Recovering/Resolving]
  - Fatigue [Unknown]
  - Injection site pain [Unknown]
